FAERS Safety Report 7979513-1 (Version None)
Quarter: 2011Q4

REPORT INFORMATION
  Report Type: 
  Country: None (occurrence: None)
  Receive Date: 20111213
  Receipt Date: 20111213
  Transmission Date: 20120403
  Serious: Yes (Hospitalization)
  Sender: FDA-Public Use
  Company Number: None

PATIENT
  Age: 91 Year
  Sex: Male
  Weight: 86.8 kg

DRUGS (2)
  1. WARFARIN SODIUM [Suspect]
     Indication: ATRIAL FIBRILLATION
     Dosage: 2.5MG MG UD  PO
     Route: 048
     Dates: start: 20081104, end: 20111110
  2. ASPIRIN [Suspect]
     Indication: ATRIAL FIBRILLATION
     Dosage: 1 TAB EVERY DAY PO
     Route: 048
     Dates: start: 19990923

REACTIONS (6)
  - ASTHENIA [None]
  - DIVERTICULUM [None]
  - DIZZINESS [None]
  - GASTRIC HAEMORRHAGE [None]
  - ARRHYTHMIA [None]
  - RECTAL HAEMORRHAGE [None]
